FAERS Safety Report 4631315-X (Version None)
Quarter: 2005Q2

REPORT INFORMATION
  Report Type: 
  Country: None (occurrence: None)
  Receive Date: 20050406
  Receipt Date: 20050323
  Transmission Date: 20051028
  Serious: Yes (Hospitalization)
  Sender: FDA-Public Use
  Company Number: USA050393918

PATIENT
  Age: 61 Year
  Sex: Female

DRUGS (6)
  1. HUMALOG [Suspect]
     Indication: DIABETES MELLITUS
     Dosage: 12 U/3 DAY
     Dates: start: 20020101
  2. ASPIRIN [Concomitant]
  3. LANTUS [Concomitant]
  4. LOVASTATIN [Concomitant]
  5. ALTACE (RAMIPRIL DURA) [Concomitant]
  6. LEVOXYL [Concomitant]

REACTIONS (2)
  - ARTERIAL OCCLUSIVE DISEASE [None]
  - CEREBROVASCULAR ACCIDENT [None]
